FAERS Safety Report 13227147 (Version 2)
Quarter: 2017Q1

REPORT INFORMATION
  Report Type: Spontaneous
  Country: US (occurrence: US)
  Receive Date: 20170213
  Receipt Date: 20170215
  Transmission Date: 20170428
  Serious: No
  Sender: FDA-Public Use
  Company Number: US-TEVA-732951ACC

PATIENT
  Age: 26 Year
  Sex: Female

DRUGS (1)
  1. PARAGARD T 380A [Suspect]
     Active Substance: COPPER
     Indication: CONTRACEPTION
     Dates: end: 20161228

REACTIONS (3)
  - Device expulsion [Unknown]
  - Embedded device [Unknown]
  - Device breakage [Unknown]

NARRATIVE: CASE EVENT DATE: 20161228
